FAERS Safety Report 8293946-8 (Version None)
Quarter: 2012Q2

REPORT INFORMATION
  Report Type: 
  Country: None (occurrence: None)
  Receive Date: 20120413
  Receipt Date: 20120402
  Transmission Date: 20120825
  Serious: Yes (Disabling, Other)
  Sender: FDA-Public Use
  Company Number: AUR-APL-2012-00732

PATIENT
  Age: 48 Year
  Sex: Female
  Weight: 90 kg

DRUGS (19)
  1. LOMOTIL [Suspect]
     Indication: CROHN'S DISEASE
     Dosage: 10 MG (2.5 MG,4 IN 1 D),ORAL
     Route: 048
  2. POTASSIUM CHLORIDE [Suspect]
     Indication: BLOOD POTASSIUM NORMAL
     Dosage: (8 MILLIEQUIVALENTS-
  3. METHOCARBAMOL [Suspect]
     Indication: MUSCLE SPASMS
     Dosage: (750 MG,AS REQUIRED),ORAL
     Route: 048
  4. ASPIRIN [Suspect]
     Indication: CHEST PAIN
     Dosage: (81 MG,AS REQUIRED)
  5. FUROSEMIDE [Suspect]
     Indication: DIURETIC THERAPY
     Dosage: 80 MG (40 MG,2 IN 1 D),ORAL
     Route: 048
  6. ISOSORBIDE MONONITRATE [Suspect]
     Indication: CARDIAC DISORDER
     Dosage: 90 MG (30 MG,3 IN 1 D)
  7. REMERON [Suspect]
     Indication: INSOMNIA
     Dosage: (30 MG,1 D),ORAL
     Route: 048
  8. ATENOLOL [Suspect]
     Indication: HYPERTENSION
     Dosage: (25 MG,1 D),ORAL
     Route: 048
  9. HUMULIN R [Suspect]
     Indication: DIABETES MELLITUS
     Dosage: 72 IU (24 IU,3 IN 1 D)
  10. LANTUS [Suspect]
     Indication: DIABETES MELLITUS
     Dosage: (170, 80 UNITS MORNING AND 90 UNITS NIGHT)
  11. ATIVAN [Suspect]
     Indication: ANXIETY
     Dosage: 3 MG (1 MG,3 IN 1 D),ORAL
     Route: 048
  12. DEPAKOTE [Suspect]
     Indication: CONVULSION
     Dosage: 1000 MG (500 MG,2 IN 1 D),ORAL
     Route: 048
  13. NORVASC [Suspect]
     Indication: CARDIAC DISORDER
     Dosage: ORAL
     Route: 048
  14. DILANTIN [Suspect]
     Indication: PRODUCT USED FOR UNKNOWN INDICATION
     Dosage: 600 MG (300 MG,2 IN 1 D),ORAL
     Route: 048
  15. TYLENOL W/ CODEINE NO. 3 [Suspect]
     Indication: MIGRAINE
     Dosage: (1 D)
  16. SIMVASTATIN [Suspect]
     Indication: BLOOD CHOLESTEROL INCREASED
     Dosage: (40 MG,1 D),ORAL
     Route: 048
  17. NITROSTAT [Suspect]
     Indication: CHEST PAIN
     Dosage: (0.4 MG,AS REQUIRED)
  18. LACTULOSE [Suspect]
     Indication: CROHN'S DISEASE
     Dosage: (30 MG,AS REQUIRED)
  19. ZANTAC [Suspect]
     Indication: GASTROOESOPHAGEAL REFLUX DISEASE
     Dosage: 900 MG (300 MG,3 IN 1 D)

REACTIONS (5)
  - CHRONIC OBSTRUCTIVE PULMONARY DISEASE [None]
  - EMPHYSEMA [None]
  - AMNESIA [None]
  - PRODUCT QUALITY ISSUE [None]
  - BEDRIDDEN [None]
